FAERS Safety Report 6496474-5 (Version None)
Quarter: 2009Q4

REPORT INFORMATION
  Report Type: 
  Country: None (occurrence: None)
  Receive Date: 20091214
  Receipt Date: 20091207
  Transmission Date: 20100525
  Serious: Yes (Hospitalization, Other)
  Sender: FDA-Public Use
  Company Number: DE-SANOFI-AVENTIS-2009SA007544

PATIENT
  Age: 58 Year

DRUGS (8)
  1. OXALIPLATIN [Suspect]
     Indication: COLON CANCER
     Route: 041
     Dates: start: 20070205, end: 20070205
  2. OXALIPLATIN [Suspect]
     Route: 041
     Dates: start: 20070612, end: 20070612
  3. FLUOROURACIL [Suspect]
     Indication: COLON CANCER
     Route: 041
     Dates: start: 20070205, end: 20070205
  4. FLUOROURACIL [Suspect]
     Route: 041
     Dates: start: 20070613, end: 20070613
  5. FOLINIC ACID [Suspect]
     Indication: COLON CANCER
     Route: 041
     Dates: start: 20070205, end: 20070205
  6. FOLINIC ACID [Suspect]
     Route: 041
     Dates: start: 20070613, end: 20070613
  7. CETUXIMAB [Suspect]
     Indication: COLON CANCER
     Route: 041
     Dates: start: 20070205, end: 20070205
  8. CETUXIMAB [Suspect]
     Route: 041
     Dates: start: 20070612, end: 20070612

REACTIONS (3)
  - ANGINA PECTORIS [None]
  - CATHETERISATION CARDIAC [None]
  - CORONARY ARTERY DISEASE [None]
